FAERS Safety Report 7262362-X (Version None)
Quarter: 2011Q1

REPORT INFORMATION
  Report Type: 
  Country: None (occurrence: None)
  Receive Date: 20110130
  Receipt Date: 20101129
  Transmission Date: 20110831
  Serious: No
  Sender: FDA-Public Use
  Company Number: US-ABBOTT-10P-163-0688137-00

PATIENT
  Sex: Male
  Weight: 45.4 kg

DRUGS (4)
  1. METHOTREXATE [Concomitant]
     Indication: PRODUCT USED FOR UNKNOWN INDICATION
     Dosage: 7.5 MG
  2. HUMIRA [Suspect]
     Dates: start: 20100701
  3. HUMIRA [Suspect]
     Indication: CROHN'S DISEASE
     Route: 058
     Dates: start: 20091001, end: 20100701
  4. ZOLOFT [Concomitant]
     Indication: PRODUCT USED FOR UNKNOWN INDICATION

REACTIONS (4)
  - DEVICE MALFUNCTION [None]
  - DRUG INEFFECTIVE [None]
  - CROHN'S DISEASE [None]
  - INJECTION SITE VESICLES [None]
